FAERS Safety Report 4513808-9 (Version None)
Quarter: 2004Q4

REPORT INFORMATION
  Report Type: 
  Country: None (occurrence: None)
  Receive Date: 20041124
  Receipt Date: 20041111
  Transmission Date: 20050328
  Serious: Yes (Death)
  Sender: FDA-Public Use
  Company Number: S04-IRL-01376-01

PATIENT
  Age: 54 Year
  Sex: Female
  Weight: 79 kg

DRUGS (11)
  1. CITALOPRAM HYDROBROMIDE [Suspect]
     Indication: DEPRESSION
     Dates: end: 20030826
  2. CITALOPRAM HYDROBROMIDE [Suspect]
     Indication: DEPRESSION
     Dosage: 20 MG QD PO
     Route: 048
     Dates: start: 20020621, end: 20030826
  3. CHLORPROMAZINE [Suspect]
     Indication: ABNORMAL BEHAVIOUR
     Dates: end: 20030826
  4. CHLORPROMAZINE [Suspect]
     Indication: ABNORMAL BEHAVIOUR
     Dosage: 75 MG TID PO
     Route: 048
     Dates: start: 20030725
  5. CHLORPROMAZINE [Suspect]
     Indication: ABNORMAL BEHAVIOUR
     Dosage: 50 MG TID PO
     Route: 048
     Dates: end: 20030724
  6. DALMANE [Concomitant]
  7. VITAMIN C [Concomitant]
  8. GAVISCON [Concomitant]
  9. FOLIC ACID [Concomitant]
  10. AKINETON [Concomitant]
  11. MODECATE ^SANOFI WINTHROP^ (FLUPHENAZINE DECANOATE) [Concomitant]

REACTIONS (11)
  - ASPIRATION TRACHEAL [None]
  - ATRIAL FIBRILLATION [None]
  - CIRCULATORY COLLAPSE [None]
  - DRUG LEVEL ABOVE THERAPEUTIC [None]
  - DRUG LEVEL INCREASED [None]
  - HEPATIC STEATOSIS [None]
  - IDIOSYNCRATIC DRUG REACTION [None]
  - METABOLIC DISORDER [None]
  - PULMONARY OEDEMA [None]
  - SUDDEN DEATH [None]
  - VENTRICULAR FIBRILLATION [None]
